FAERS Safety Report 13028575 (Version 1)
Quarter: 2016Q4

REPORT INFORMATION
  Report Type: Report from Study
  Country: IT (occurrence: IT)
  Receive Date: 20161214
  Receipt Date: 20161214
  Transmission Date: 20170207
  Serious: Yes (Other)
  Sender: FDA-Public Use
  Company Number: IT-MYLANLABS-2016M1055210

PATIENT

DRUGS (4)
  1. BEVACIZUMAB [Suspect]
     Active Substance: BEVACIZUMAB
     Dosage: 10MG/KG EVERY TWO WEEKS; SECOND DOSE TO 60MINUTES THEN 30MINUTES
     Route: 041
  2. BEVACIZUMAB [Suspect]
     Active Substance: BEVACIZUMAB
     Dosage: 10MG/KG EVERY TWO WEEKS; INFUSED TO 30MINUTES
     Route: 041
  3. PACLITAXEL. [Suspect]
     Active Substance: PACLITAXEL
     Indication: BREAST CANCER METASTATIC
     Dosage: 70MG/M2 WEEKLY ON DAY 1, 8 AND 15 OF 21 DAY CYCLE
     Route: 065
  4. BEVACIZUMAB [Suspect]
     Active Substance: BEVACIZUMAB
     Indication: BREAST CANCER METASTATIC
     Dosage: 10MG/KG EVERY TWO WEEKS; FIRST DOSE INFUSED OVER 90MINUTES WITH SECOND DOSE INFUSED TO 60 MINUTES
     Route: 041

REACTIONS (3)
  - Hypertension [Unknown]
  - Neutropenia [Unknown]
  - Proteinuria [Unknown]
